FAERS Safety Report 17171665 (Version 4)
Quarter: 2022Q1

REPORT INFORMATION
  Report Type: Report from Study
  Country: FR (occurrence: FR)
  Receive Date: 20191218
  Receipt Date: 20220217
  Transmission Date: 20220423
  Serious: Yes (Hospitalization, Other)
  Sender: FDA-Public Use
  Company Number: FR-CELGENE-FRA-20191205374

PATIENT
  Age: 69 Year
  Sex: Female

DRUGS (19)
  1. ROMIDEPSIN [Suspect]
     Active Substance: ROMIDEPSIN
     Indication: Angioimmunoblastic T-cell lymphoma
     Dosage: 15 MILLIGRAM
     Route: 041
     Dates: start: 20150826
  2. ROMIDEPSIN [Suspect]
     Active Substance: ROMIDEPSIN
     Dosage: 15 MILLIGRAM
     Route: 041
     Dates: start: 20151216
  3. BENDAMUSTINE [Concomitant]
     Active Substance: BENDAMUSTINE
     Indication: Angioimmunoblastic T-cell lymphoma
     Route: 065
     Dates: start: 20160809, end: 201611
  4. CYCLOPHOSPHAMIDE\DOXORUBICIN\PREDNISONE\VINCRISTINE [Concomitant]
     Active Substance: CYCLOPHOSPHAMIDE\DOXORUBICIN\PREDNISONE\VINCRISTINE
     Indication: Angioimmunoblastic T-cell lymphoma
     Route: 065
     Dates: start: 20150825, end: 20151212
  5. LEVOTHYROXINE SODIUM [Concomitant]
     Active Substance: LEVOTHYROXINE SODIUM
     Indication: Hypothyroidism
     Route: 065
  6. HYDROXYCHLOROQUINE SULFATE [Concomitant]
     Active Substance: HYDROXYCHLOROQUINE SULFATE
     Indication: Sjogren^s syndrome
     Route: 065
  7. Amoxicillin acide cavul [Concomitant]
     Indication: Pyrexia
     Route: 065
     Dates: start: 20150825, end: 20150904
  8. CIPROFLOXACIN [Concomitant]
     Active Substance: CIPROFLOXACIN
     Indication: Pyrexia
     Route: 065
     Dates: start: 20150825, end: 20150904
  9. FUROSEMIDE [Concomitant]
     Active Substance: FUROSEMIDE
     Indication: Infusion related reaction
     Route: 065
     Dates: start: 20150825, end: 20150825
  10. METOCLOPRAMIDE [Concomitant]
     Active Substance: METOCLOPRAMIDE
     Indication: Nausea
     Route: 065
     Dates: start: 20150825, end: 20151209
  11. CHLORPROMAZINE [Concomitant]
     Active Substance: CHLORPROMAZINE
     Indication: Nausea
     Route: 065
     Dates: start: 20150825, end: 20160105
  12. APREPITANT [Concomitant]
     Active Substance: APREPITANT
     Indication: Nausea
     Route: 065
     Dates: start: 20150901, end: 20160105
  13. ONDANSETRON [Concomitant]
     Active Substance: ONDANSETRON
     Indication: Nausea
     Route: 065
     Dates: start: 20150901, end: 20160105
  14. POLARAMINE [Concomitant]
     Active Substance: DEXCHLORPHENIRAMINE MALEATE
     Indication: Premedication
     Route: 065
     Dates: start: 20151117, end: 20151216
  15. ACETAMINOPHEN [Concomitant]
     Active Substance: ACETAMINOPHEN
     Indication: Premedication
     Route: 065
     Dates: start: 20151117, end: 20151216
  16. HYDROCORTISONE [Concomitant]
     Active Substance: HYDROCORTISONE
     Indication: Premedication
     Route: 065
     Dates: start: 20151117, end: 20151216
  17. MICONAZOLE [Concomitant]
     Active Substance: MICONAZOLE
     Indication: Candida infection
     Route: 065
     Dates: start: 20151118, end: 20151128
  18. NOREPINEPHRINE [Concomitant]
     Active Substance: NOREPINEPHRINE
     Indication: Hypotension
     Route: 065
     Dates: start: 20151028, end: 20151028
  19. MESNA [Concomitant]
     Active Substance: MESNA
     Indication: Chemotherapy side effect prophylaxis
     Route: 065
     Dates: start: 20150825, end: 20151209

REACTIONS (1)
  - Myelodysplastic syndrome [Not Recovered/Not Resolved]

NARRATIVE: CASE EVENT DATE: 20190709
